FAERS Safety Report 13754086 (Version 1)
Quarter: 2017Q3

REPORT INFORMATION
  Report Type: Spontaneous
  Country: GB (occurrence: GB)
  Receive Date: 20170714
  Receipt Date: 20170714
  Transmission Date: 20171127
  Serious: Yes (Other)
  Sender: FDA-Public Use
  Company Number: GB-009507513-1707GBR002343

PATIENT
  Age: 90 Year
  Sex: Male
  Weight: 53.06 kg

DRUGS (3)
  1. BETAMETHASONE. [Suspect]
     Active Substance: BETAMETHASONE
     Dosage: FINGER TIP AMOUNT
     Route: 061
     Dates: start: 20170629, end: 20170702
  2. CLIOQUINOL [Suspect]
     Active Substance: CLIOQUINOL
     Dosage: FINGER TIP AMOUNT TWICE DAILY
     Route: 061
     Dates: start: 20170629, end: 20170702
  3. BISOPROLOL FUMARATE. [Concomitant]
     Active Substance: BISOPROLOL FUMARATE

REACTIONS (3)
  - Blood pressure decreased [Recovered/Resolved]
  - Heart rate increased [Recovered/Resolved]
  - Dizziness [Recovered/Resolved]
